FAERS Safety Report 10532013 (Version 2)
Quarter: 2015Q1

REPORT INFORMATION
  Report Type: Spontaneous
  Country: DE (occurrence: None)
  Receive Date: 20141021
  Receipt Date: 20150316
  Transmission Date: 20150720
  Serious: Yes (Life-Threatening)
  Sender: FDA-Public Use
  Company Number: MERZ NORTH AMERICA, INC.-14MRZ-00375

PATIENT
  Age: 35 Year
  Sex: Male
  Weight: 91 kg

DRUGS (3)
  1. KATADOLON [Concomitant]
     Active Substance: FLUPIRTINE
     Indication: PRODUCT USED FOR UNKNOWN INDICATION
     Dosage: NOT REPORTED
     Dates: start: 20140916, end: 20140916
  2. OCTOLIPEN [Concomitant]
     Indication: PRODUCT USED FOR UNKNOWN INDICATION
     Dates: start: 20140916, end: 20140916
  3. XEOMIN [Suspect]
     Active Substance: INCOBOTULINUMTOXINA
     Indication: DYSTONIA
     Route: 030
     Dates: start: 20141003, end: 20141003

REACTIONS (3)
  - Seizure [None]
  - Loss of consciousness [None]
  - Hypotension [None]

NARRATIVE: CASE EVENT DATE: 20141003
